FAERS Safety Report 7641213-5 (Version None)
Quarter: 2011Q3

REPORT INFORMATION
  Report Type: 
  Country: None (occurrence: None)
  Receive Date: 20110728
  Receipt Date: 20110720
  Transmission Date: 20111222
  Serious: Yes (Hospitalization)
  Sender: FDA-Public Use
  Company Number: PHHY2011US66304

PATIENT
  Age: 35 Year
  Sex: Female

DRUGS (2)
  1. LEVAQUIN [Concomitant]
  2. TOBI [Suspect]
     Dosage: 300 MG, TWICE A DAY IN A CYCLE OF 28 DAYS ON AND 28 DAYS OFF
     Dates: start: 20090603

REACTIONS (3)
  - PNEUMONIA [None]
  - MATERNAL EXPOSURE DURING PREGNANCY [None]
  - NORMAL NEWBORN [None]
